FAERS Safety Report 9485876 (Version 1)
Quarter: 2013Q3

REPORT INFORMATION
  Report Type: Spontaneous
  Country: US (occurrence: US)
  Receive Date: 20130829
  Receipt Date: 20130829
  Transmission Date: 20140515
  Serious: No
  Sender: FDA-Public Use
  Company Number: US-009507513-1308USA010372

PATIENT
  Sex: Female

DRUGS (7)
  1. VICTRELIS [Suspect]
     Indication: HEPATITIS C
     Dosage: 800 MG, TID
     Route: 048
     Dates: start: 201308
  2. CLOBETASOL PROPIONATE [Concomitant]
  3. CALCIUM (UNSPECIFIED) [Concomitant]
  4. IMITREX (SUMATRIPTAN) [Concomitant]
  5. VITAMINS (UNSPECIFIED) [Concomitant]
  6. FLUOCINONIDE [Concomitant]
  7. TYLENOL [Concomitant]

REACTIONS (4)
  - Pyrexia [Unknown]
  - Vomiting [Unknown]
  - Burning sensation [Unknown]
  - Weight decreased [Unknown]
